FAERS Safety Report 5034937-X (Version None)
Quarter: 2006Q2

REPORT INFORMATION
  Report Type: 
  Country: None (occurrence: None)
  Receive Date: 20060627
  Receipt Date: 20060613
  Transmission Date: 20061013
  Serious: Yes (Other)
  Sender: FDA-Public Use
  Company Number: PHBS2006CH09391

PATIENT
  Sex: Female

DRUGS (1)
  1. TEGRETOL [Suspect]
     Indication: EPILEPSY
     Route: 065
     Dates: end: 20040101

REACTIONS (6)
  - BONE PAIN [None]
  - FALL [None]
  - HEPATIC ENZYME INCREASED [None]
  - HUMERUS FRACTURE [None]
  - LIVER DISORDER [None]
  - OSTEOPENIA [None]
